FAERS Safety Report 6693008-7 (Version None)
Quarter: 2010Q2

REPORT INFORMATION
  Report Type: 
  Country: None (occurrence: None)
  Receive Date: 20100420
  Receipt Date: 20100405
  Transmission Date: 20101027
  Serious: Yes (Hospitalization, Other)
  Sender: FDA-Public Use
  Company Number: A-NJ2009-24687

PATIENT
  Age: 70 Year
  Sex: Female

DRUGS (6)
  1. TRACLEER [Suspect]
     Indication: PULMONARY ARTERIAL HYPERTENSION
     Dosage: 125 MG, BID, ORAL; 62.5 MG, BID, ORAL
     Route: 048
     Dates: start: 20090318, end: 20090301
  2. TRACLEER [Suspect]
     Indication: PULMONARY ARTERIAL HYPERTENSION
     Dosage: 125 MG, BID, ORAL; 62.5 MG, BID, ORAL
     Route: 048
     Dates: start: 20090301, end: 20090403
  3. TRACLEER [Suspect]
     Indication: PULMONARY ARTERIAL HYPERTENSION
     Dosage: 125 MG, BID, ORAL; 62.5 MG, BID, ORAL
     Route: 048
     Dates: start: 20090616, end: 20100101
  4. TRACLEER [Suspect]
  5. REVATIO [Concomitant]
  6. COUMADIN [Concomitant]

REACTIONS (10)
  - ASPIRATION PLEURAL CAVITY [None]
  - HAEMOTHORAX [None]
  - HYPERSENSITIVITY [None]
  - MIDDLE INSOMNIA [None]
  - MULTIPLE ALLERGIES [None]
  - OFF LABEL USE [None]
  - PLEURAL EFFUSION [None]
  - POSTNASAL DRIP [None]
  - PRURITUS [None]
  - RESTLESSNESS [None]
